FAERS Safety Report 23702920 (Version 1)
Quarter: 2024Q2

REPORT INFORMATION
  Report Type: Spontaneous
  Country: US (occurrence: None)
  Receive Date: 20240403
  Receipt Date: 20240403
  Transmission Date: 20240715
  Serious: Yes (Death)
  Sender: FDA-Public Use
  Company Number: None

PATIENT
  Sex: Female

DRUGS (8)
  1. AMBRISENTAN [Suspect]
     Active Substance: AMBRISENTAN
     Indication: Pulmonary arterial hypertension
     Dosage: FREQUENCY : DAILY;?
     Route: 048
  2. CELLCEPT [Concomitant]
     Active Substance: MYCOPHENOLATE MOFETIL
  3. LASIX [Concomitant]
     Active Substance: FUROSEMIDE
  4. CARVEDILOL [Concomitant]
     Active Substance: CARVEDILOL
  5. ORENITRAM [Concomitant]
     Active Substance: TREPROSTINIL
  6. VITAMINS [Concomitant]
     Active Substance: VITAMINS
  7. SILDENAFIL [Concomitant]
     Active Substance: SILDENAFIL
  8. NIFEDIPINE [Concomitant]
     Active Substance: NIFEDIPINE

REACTIONS (1)
  - Death [None]
